FAERS Safety Report 5219063-9 (Version None)
Quarter: 2007Q1

REPORT INFORMATION
  Report Type: 
  Country: None (occurrence: None)
  Receive Date: 20070125
  Receipt Date: 20070119
  Transmission Date: 20070707
  Serious: Yes (Death, Hospitalization)
  Sender: FDA-Public Use
  Company Number: JP-ELI_LILLY_AND_COMPANY-JP200610001075

PATIENT
  Age: 60 Year
  Sex: Female

DRUGS (8)
  1. HERBESSOR R [Concomitant]
     Indication: ANGINA PECTORIS
     Dosage: 1 D/F, DAILY (1/D)
     Route: 048
     Dates: start: 20050117
  2. ASPIRIN [Concomitant]
     Indication: ANGINA PECTORIS
     Dosage: 1 D/F, DAILY (1/D)
     Route: 048
     Dates: start: 20050117
  3. PARIET                                  /JPN/ [Concomitant]
     Indication: REFLUX OESOPHAGITIS
     Dosage: 1 D/F, DAILY (1/D)
     Route: 048
     Dates: start: 20050314
  4. ASPARA-CA [Concomitant]
     Indication: OSTEOPOROSIS
     Dosage: 2 D/F, DAILY (1/D)
     Route: 048
  5. GLAKAY [Concomitant]
     Indication: OSTEOPOROSIS
     Dosage: 3 D/F, DAILY (1/D)
     Route: 048
  6. ONE-ALPHA [Concomitant]
     Indication: OSTEOPOROSIS
     Dosage: 2 D/F, DAILY (1/D)
     Route: 048
  7. GEMZAR [Suspect]
     Indication: PANCREATIC CARCINOMA STAGE IV
     Dosage: 1600 MG, OTHER
     Route: 042
     Dates: start: 20050128, end: 20050617
  8. GEMZAR [Suspect]
     Dosage: 1600 MG, OTHER
     Route: 042
     Dates: start: 20050704, end: 20050704

REACTIONS (3)
  - CEREBRAL INFARCTION [None]
  - MALIGNANT NEOPLASM PROGRESSION [None]
  - TROUSSEAU'S SYNDROME [None]
